FAERS Safety Report 5620001-5 (Version None)
Quarter: 2008Q1

REPORT INFORMATION
  Report Type: 
  Country: None (occurrence: None)
  Receive Date: 20080208
  Receipt Date: 20080129
  Transmission Date: 20080703
  Serious: Yes (Death)
  Sender: FDA-Public Use
  Company Number: US-ROCHE-540984

PATIENT
  Age: 89 Year
  Sex: Female

DRUGS (1)
  1. BONIVA [Suspect]
     Indication: DRUG USE FOR UNKNOWN INDICATION
     Route: 065

REACTIONS (3)
  - ATRIAL FIBRILLATION [None]
  - CEREBROVASCULAR ACCIDENT [None]
  - PNEUMONIA ASPIRATION [None]
